FAERS Safety Report 5649962-5 (Version None)
Quarter: 2008Q1

REPORT INFORMATION
  Report Type: 
  Country: None (occurrence: None)
  Receive Date: 20080304
  Receipt Date: 20080223
  Transmission Date: 20080703
  Serious: Yes (Hospitalization)
  Sender: FDA-Public Use
  Company Number: BR-ABBOTT-08P-020-0439812-00

PATIENT
  Sex: Male
  Weight: 68 kg

DRUGS (4)
  1. HUMIRA [Suspect]
     Indication: RHEUMATOID ARTHRITIS
     Route: 058
     Dates: start: 20070901
  2. AMIODARONE HCL [Concomitant]
     Indication: CARDIAC DISORDER
     Route: 048
  3. FUROSEMIDE [Concomitant]
     Indication: HYPERTENSION
     Route: 048
  4. ASPIRIN [Concomitant]
     Indication: CARDIAC DISORDER
     Route: 048

REACTIONS (4)
  - BACK PAIN [None]
  - FALL [None]
  - INTERVERTEBRAL DISC COMPRESSION [None]
  - SPINAL FRACTURE [None]
